FAERS Safety Report 8910098 (Version 1)
Quarter: 2012Q4

REPORT INFORMATION
  Report Type: 
  Country: US (occurrence: US)
  Receive Date: 20121114
  Receipt Date: 20121114
  Transmission Date: 20130627
  Serious: No
  Sender: FDA-Public Use
  Company Number: US-ASTRAZENECA-2012SE83469

PATIENT
  Age: 52 Year
  Sex: Female

DRUGS (15)
  1. SEROQUEL [Suspect]
     Route: 048
  2. VILAZODONE [Concomitant]
     Indication: DEPRESSION
     Dates: start: 20120704
  3. OXYBUTYNIN [Concomitant]
     Indication: POLLAKIURIA
     Dates: start: 20120624
  4. BUSPIRONE [Concomitant]
     Dosage: 1/2 TABLET TO 1 TABLET BID
     Dates: start: 20120625
  5. RISPERDAL [Concomitant]
     Indication: AFFECTIVE DISORDER
     Dates: start: 20120625
  6. RISPERDAL [Concomitant]
     Indication: PARANOIA
     Dates: start: 20120625
  7. NAPROXEN [Concomitant]
     Dates: start: 20120625
  8. ADVAIR [Concomitant]
     Dosage: 250 MCG-50MCG , BID
     Dates: start: 20120625
  9. ALBUTEROL [Concomitant]
     Dosage: 90 MCG/INH 1 Q4-6H
     Route: 055
     Dates: start: 20120531
  10. ACETAMINOPHEN [Concomitant]
     Dosage: IN BETWEEN NAPROXEN
     Dates: start: 20120531
  11. DESVENLAFAXINE [Concomitant]
  12. CYMBALTA [Concomitant]
     Dates: end: 2012
  13. TRAMADOL [Concomitant]
  14. NEXIUM [Concomitant]
     Route: 048
     Dates: start: 20121022
  15. TRIALED DETROL LA [Concomitant]

REACTIONS (1)
  - Drug intolerance [Unknown]
